FAERS Safety Report 5493600-1 (Version None)
Quarter: 2007Q4

REPORT INFORMATION
  Report Type: 
  Country: None (occurrence: None)
  Receive Date: 20071023
  Receipt Date: 20071009
  Transmission Date: 20080405
  Serious: Yes (Other)
  Sender: FDA-Public Use
  Company Number: BR-RANBAXY-2007R5-10621

PATIENT

DRUGS (7)
  1. GABAPENTINA [Suspect]
     Indication: SURGERY
     Dosage: 300 MG, BID
     Route: 048
     Dates: end: 20071009
  2. ACETAMINOPHEN W/ CODEINE [Concomitant]
     Dosage: 30 MG, TID
  3. FLODIN DUO [Concomitant]
     Dosage: 150 MG, QD
     Route: 048
  4. OMEPRAZOLE [Concomitant]
     Dosage: 20 MG, QD
     Route: 048
  5. GLYBURIDE [Concomitant]
     Dosage: 5 MG, TID
  6. ENALAPRIL MALEATE [Concomitant]
     Dosage: 10 MG, QD
     Route: 048
  7. RIVOTRIL [Concomitant]
     Dosage: 1 MG, QD
     Route: 048

REACTIONS (4)
  - ABDOMINAL PAIN [None]
  - DIARRHOEA [None]
  - DIARRHOEA HAEMORRHAGIC [None]
  - NAUSEA [None]
